FAERS Safety Report 9624945 (Version 1)
Quarter: 2013Q4

REPORT INFORMATION
  Report Type: Spontaneous
  Country: US (occurrence: US)
  Receive Date: 20131016
  Receipt Date: 20131016
  Transmission Date: 20140711
  Serious: No
  Sender: FDA-Public Use
  Company Number: US-BIOGENIDEC-2013BI097177

PATIENT
  Age: 43 Year
  Sex: Male

DRUGS (8)
  1. TYSABRI [Suspect]
     Indication: CROHN^S DISEASE
     Route: 042
  2. VSL #3 [Concomitant]
     Indication: POUCHITIS
  3. CIPROFLOXACIN [Concomitant]
     Indication: POUCHITIS
  4. DOXYCYCLINE [Concomitant]
     Indication: POUCHITIS
  5. METRONIDAZOLE [Concomitant]
     Indication: POUCHITIS
  6. SULFAMETHOXAZOLE?TRIMETHOPRIM [Concomitant]
     Indication: POUCHITIS
  7. INFLIXIMAB [Concomitant]
     Indication: POUCHITIS
  8. ADALIMUMAB [Concomitant]
     Indication: POUCHITIS

REACTIONS (1)
  - Drug ineffective [Recovered/Resolved]
